FAERS Safety Report 7144869-9 (Version None)
Quarter: 2010Q4

REPORT INFORMATION
  Report Type: 
  Country: None (occurrence: None)
  Receive Date: 20101208
  Receipt Date: 20101130
  Transmission Date: 20110411
  Serious: Yes (Hospitalization)
  Sender: FDA-Public Use
  Company Number: FR-PFIZER INC-2010160067

PATIENT
  Sex: Female
  Weight: 24 kg

DRUGS (5)
  1. ADVIL [Suspect]
     Dosage: 2 INTAKES A WEEK, AS NEEDED
     Route: 048
     Dates: start: 20090901, end: 20091001
  2. ADVIL [Suspect]
     Dosage: UNK
     Dates: start: 20100401
  3. ADVIL [Suspect]
     Dosage: 200 MG, AS NEEDED
     Route: 048
     Dates: start: 20100511, end: 20100512
  4. JOSACIN [Suspect]
     Indication: MYCOPLASMA INFECTION
     Dosage: UNK
     Route: 048
     Dates: start: 20100513, end: 20100517
  5. PERFALGAN [Suspect]
     Dosage: 80 MG/KG, 1X/DAY
     Route: 042
     Dates: start: 20100513, end: 20100524

REACTIONS (1)
  - CYTOLYTIC HEPATITIS [None]
